FAERS Safety Report 15597153 (Version 7)
Quarter: 2020Q1

REPORT INFORMATION
  Report Type: Report from Study
  Country: ES (occurrence: ES)
  Receive Date: 20181108
  Receipt Date: 20200212
  Transmission Date: 20200409
  Serious: Yes (Life-Threatening, Hospitalization)
  Sender: FDA-Public Use
  Company Number: ES-ROCHE-2210087

PATIENT
  Age: 68 Year
  Sex: Female
  Weight: 64.7 kg

DRUGS (10)
  1. ACICLOVIR [Concomitant]
     Active Substance: ACYCLOVIR
     Route: 048
     Dates: start: 20181105
  2. COBIMETINIB. [Suspect]
     Active Substance: COBIMETINIB
     Indication: PLASMA CELL MYELOMA
     Dosage: ON 31/OCT/2018, SHE RECEIVED HER MOST RECENT DOSE OF COBIMETINIB (40 MG) PRIOR TO SAE ONSET
     Route: 048
     Dates: start: 20181004
  3. SEPTRIN [Concomitant]
     Active Substance: SULFAMETHOXAZOLE\TRIMETHOPRIM
     Indication: PROPHYLAXIS
     Route: 048
     Dates: start: 20180816
  4. POTASSIUM ASCORBATE [Concomitant]
     Active Substance: POTASSIUM ASCORBATE
     Indication: HYPOKALAEMIA
     Route: 048
     Dates: start: 20180818
  5. POTASSIUM ASCORBATE [Concomitant]
     Active Substance: POTASSIUM ASCORBATE
     Route: 048
     Dates: start: 20181031
  6. MELATONINE [Concomitant]
     Active Substance: MELATONIN
     Indication: INSOMNIA
     Route: 048
     Dates: start: 20181102
  7. OMEPRAZOL [OMEPRAZOLE] [Concomitant]
     Active Substance: OMEPRAZOLE
     Indication: GASTROINTESTINAL DISORDER PROPHYLAXIS
     Route: 048
     Dates: start: 20180612
  8. FORTASEC [LOPERAMIDE] [Concomitant]
     Indication: DIARRHOEA
     Route: 048
     Dates: start: 20181004
  9. VENETOCLAX. [Suspect]
     Active Substance: VENETOCLAX
     Indication: PLASMA CELL MYELOMA
     Dosage: ON 31/OCT/2018, SHE RECEIVED HER MOST RECENT DOSE OF VENETOCLAX (800 MG) PRIOR TO SAE ONSET
     Route: 048
     Dates: start: 20181004
  10. ACICLOVIR [Concomitant]
     Active Substance: ACYCLOVIR
     Indication: PROPHYLAXIS
     Route: 048
     Dates: start: 20180816, end: 20181101

REACTIONS (1)
  - Pneumococcal bacteraemia [Recovered/Resolved]

NARRATIVE: CASE EVENT DATE: 20181101
